FAERS Safety Report 11434672 (Version 1)
Quarter: 2015Q3

REPORT INFORMATION
  Report Type: Report from Study
  Country: BR (occurrence: BR)
  Receive Date: 20150831
  Receipt Date: 20150831
  Transmission Date: 20151125
  Serious: Yes (Hospitalization)
  Sender: FDA-Public Use
  Company Number: PHHY2015BR103828

PATIENT
  Age: 63 Year
  Sex: Female
  Weight: 57 kg

DRUGS (3)
  1. DIOVAN [Suspect]
     Active Substance: VALSARTAN
     Indication: LOW DENSITY LIPOPROTEIN
  2. DIOVAN [Suspect]
     Active Substance: VALSARTAN
     Indication: HYPERTENSION
     Dosage: 1 DF, QD (1 IN THE MORNING)
     Route: 065
  3. DIOVAN TRIPLE [Suspect]
     Active Substance: AMLODIPINE BESYLATE\HYDROCHLOROTHIAZIDE\VALSARTAN
     Indication: PRODUCT USED FOR UNKNOWN INDICATION
     Dosage: STARTED FROM 4 YEARS AGO
     Route: 065

REACTIONS (8)
  - Asthenia [Unknown]
  - Malaise [Unknown]
  - Weight decreased [Unknown]
  - Pollakiuria [Not Recovered/Not Resolved]
  - Heart rate increased [Unknown]
  - Drug ineffective [Unknown]
  - Urinary tract infection [Unknown]
  - Diarrhoea [Unknown]
